FAERS Safety Report 5343572-5 (Version None)
Quarter: 2007Q2

REPORT INFORMATION
  Report Type: 
  Country: None (occurrence: None)
  Receive Date: 20070604
  Receipt Date: 20070525
  Transmission Date: 20071010
  Serious: Yes (Hospitalization)
  Sender: FDA-Public Use
  Company Number: US-BAYER-200711374BCC

PATIENT
  Age: 85 Year
  Sex: Female
  Weight: 45 kg

DRUGS (4)
  1. ALEVE [Suspect]
     Indication: BACK PAIN
     Dosage: TOTAL DAILY DOSE: 440 MG  UNIT DOSE: 220 MG
     Route: 048
     Dates: start: 20030101, end: 20070401
  2. CRESTOR [Concomitant]
  3. SYNTHROID [Concomitant]
  4. DARVOCET [Concomitant]

REACTIONS (3)
  - CARDIAC FAILURE CONGESTIVE [None]
  - DIVERTICULITIS [None]
  - PNEUMONIA [None]
